FAERS Safety Report 6875858-7 (Version None)
Quarter: 2010Q3

REPORT INFORMATION
  Report Type: 
  Country: None (occurrence: None)
  Receive Date: 20100727
  Receipt Date: 20070702
  Transmission Date: 20110219
  Serious: Yes (Hospitalization, Other)
  Sender: FDA-Public Use
  Company Number: US-PFIZER INC-2006116919

PATIENT
  Age: 50 Year
  Sex: Male
  Weight: 131.5 kg

DRUGS (7)
  1. CELEBREX [Suspect]
     Indication: ARTHRITIS
     Dates: start: 20020529, end: 20020801
  2. BEXTRA [Suspect]
  3. VIOXX [Suspect]
     Dates: start: 20010507, end: 20020327
  4. ADVIL LIQUI-GELS [Concomitant]
  5. MOBIC [Concomitant]
  6. ULTRAM [Concomitant]
  7. NEXIUM [Concomitant]

REACTIONS (1)
  - MYOCARDIAL INFARCTION [None]
